FAERS Safety Report 9473884 (Version 2)
Quarter: 2013Q3

REPORT INFORMATION
  Report Type: Spontaneous
  Country: US (occurrence: US)
  Receive Date: 20130823
  Receipt Date: 20130823
  Transmission Date: 20140515
  Serious: Yes (Hospitalization)
  Sender: FDA-Public Use
  Company Number: US-BRISTOL-MYERS SQUIBB COMPANY-17108978

PATIENT
  Age: 53 Year
  Sex: Female
  Weight: 56.23 kg

DRUGS (1)
  1. SPRYCEL [Suspect]
     Indication: CHRONIC MYELOID LEUKAEMIA
     Route: 048
     Dates: start: 20120822, end: 20121021

REACTIONS (3)
  - Enterocolitis haemorrhagic [Recovering/Resolving]
  - White blood cell count decreased [Unknown]
  - Platelet count decreased [Unknown]
